FAERS Safety Report 12744336 (Version 1)
Quarter: 2016Q3

REPORT INFORMATION
  Report Type: Spontaneous
  Country: JP (occurrence: JP)
  Receive Date: 20160914
  Receipt Date: 20160914
  Transmission Date: 20161109
  Serious: No
  Sender: FDA-Public Use
  Company Number: JP-ELI_LILLY_AND_COMPANY-JP201609004109

PATIENT
  Age: 73 Year
  Sex: Female

DRUGS (4)
  1. NEUROTROPIN                        /06251301/ [Concomitant]
     Active Substance: ORYCTOLAGUS CUNICULUS SKIN
     Indication: SCIATICA
     Dosage: UNK
     Route: 048
  2. CYMBALTA [Suspect]
     Active Substance: DULOXETINE HYDROCHLORIDE
     Dosage: 40 MG, QD
     Route: 048
     Dates: start: 20160827, end: 20160901
  3. VITAMINS NOS [Concomitant]
     Active Substance: VITAMINS
     Indication: SCIATICA
     Dosage: UNK
     Route: 048
  4. CYMBALTA [Suspect]
     Active Substance: DULOXETINE HYDROCHLORIDE
     Indication: SCIATICA
     Dosage: 20 MG, QD
     Route: 048
     Dates: start: 20160730, end: 20160826

REACTIONS (2)
  - Off label use [Not Recovered/Not Resolved]
  - Hepatic function abnormal [Unknown]

NARRATIVE: CASE EVENT DATE: 20160730
